FAERS Safety Report 19068103 (Version 10)
Quarter: 2021Q3

REPORT INFORMATION
  Report Type: Report from Study
  Country: US (occurrence: US)
  Receive Date: 20210329
  Receipt Date: 20210929
  Transmission Date: 20211014
  Serious: Yes (Other)
  Sender: FDA-Public Use
  Company Number: US-GLAXOSMITHKLINE-US2021AMR070859

PATIENT
  Age: 81 Year
  Sex: Female

DRUGS (1)
  1. BELANTAMAB MAFODOTIN. [Suspect]
     Active Substance: BELANTAMAB MAFODOTIN
     Indication: PRODUCT USED FOR UNKNOWN INDICATION
     Dosage: UNK
     Dates: start: 20201130

REACTIONS (6)
  - Visual acuity reduced [Not Recovered/Not Resolved]
  - Immunodeficiency [Unknown]
  - Corneal dystrophy [Unknown]
  - Dry eye [Not Recovered/Not Resolved]
  - Keratopathy [Unknown]
  - Cognitive disorder [Unknown]

NARRATIVE: CASE EVENT DATE: 20210628
